FAERS Safety Report 11647616 (Version 1)
Quarter: 2015Q4

REPORT INFORMATION
  Report Type: Spontaneous
  Country: US (occurrence: None)
  Receive Date: 20151020
  Receipt Date: 20151020
  Transmission Date: 20160304
  Serious: Yes (Hospitalization)
  Sender: FDA-Public Use
  Company Number: None

PATIENT
  Age: 91 Year
  Sex: Male
  Weight: 68.2 kg

DRUGS (1)
  1. CETUZIMAB [Suspect]
     Active Substance: CETUXIMAB
     Route: 042
     Dates: start: 20150806, end: 20150806

REACTIONS (2)
  - Infusion related reaction [None]
  - Hypersensitivity [None]

NARRATIVE: CASE EVENT DATE: 20150806
